FAERS Safety Report 19127330 (Version 1)
Quarter: 2021Q2

REPORT INFORMATION
  Report Type: Spontaneous
  Country: US (occurrence: US)
  Receive Date: 20210413
  Receipt Date: 20210413
  Transmission Date: 20210717
  Serious: No
  Sender: FDA-Public Use
  Company Number: US-ALLERGAN-2017958US

PATIENT
  Age: 44 Year
  Sex: Female

DRUGS (1)
  1. LATISSE [Suspect]
     Active Substance: BIMATOPROST
     Indication: GROWTH OF EYELASHES
     Dosage: ONE DROP PER APPLICATOR PER EYES, THREE TIMES A WEEK
     Route: 061
     Dates: start: 202004, end: 202004

REACTIONS (4)
  - Erythema of eyelid [Unknown]
  - Inappropriate schedule of product administration [Unknown]
  - Periorbital irritation [Unknown]
  - Erythema [Unknown]

NARRATIVE: CASE EVENT DATE: 202004
